FAERS Safety Report 19276730 (Version 4)
Quarter: 2022Q1

REPORT INFORMATION
  Report Type: Spontaneous
  Country: GB (occurrence: GB)
  Receive Date: 20210519
  Receipt Date: 20220304
  Transmission Date: 20220423
  Serious: Yes (Other)
  Sender: FDA-Public Use
  Company Number: GB-ORGANON-O2105GBR001202

PATIENT
  Age: 20 Year
  Sex: Female

DRUGS (2)
  1. NEXPLANON [Suspect]
     Active Substance: ETONOGESTREL
     Dosage: 1 IMPLANT
     Dates: start: 2016, end: 2017
  2. NEXPLANON [Suspect]
     Active Substance: ETONOGESTREL
     Dosage: 1 IMPLANT
     Route: 059
     Dates: start: 20210414

REACTIONS (8)
  - Hyperthyroidism [Unknown]
  - Polymenorrhoea [Unknown]
  - Menometrorrhagia [Unknown]
  - Implant site pain [Unknown]
  - Device placement issue [Not Recovered/Not Resolved]
  - Device issue [Recovered/Resolved]
  - Device deployment issue [Recovered/Resolved]
  - Amenorrhoea [Unknown]

NARRATIVE: CASE EVENT DATE: 20160101
